FAERS Safety Report 9286560 (Version 1)
Quarter: 2013Q2

REPORT INFORMATION
  Report Type: Spontaneous
  Country: US (occurrence: US)
  Receive Date: 20130513
  Receipt Date: 20130513
  Transmission Date: 20140414
  Serious: No
  Sender: FDA-Public Use
  Company Number: US-ROXANE LABORATORIES, INC.-2013-RO-00737RO

PATIENT
  Sex: Female

DRUGS (2)
  1. METHADONE [Suspect]
     Indication: RHEUMATOID ARTHRITIS
     Route: 048
  2. METHADONE [Suspect]
     Indication: UPPER LIMB FRACTURE

REACTIONS (1)
  - Fatigue [Unknown]
